FAERS Safety Report 4830711-5 (Version None)
Quarter: 2005Q4

REPORT INFORMATION
  Report Type: 
  Country: None (occurrence: None)
  Receive Date: 20051114
  Receipt Date: 20051102
  Transmission Date: 20060501
  Serious: Yes (Hospitalization)
  Sender: FDA-Public Use
  Company Number: HQWYE773318MAY05

PATIENT
  Age: 76 Year
  Sex: Male

DRUGS (3)
  1. PANTOZOL (PANTOPRAZOLE, TABLET, DELAYED RELEASE) [Suspect]
     Indication: GASTROOESOPHAGEAL REFLUX DISEASE
     Dosage: 40 MG, ORAL
     Route: 048
     Dates: start: 19900821
  2. DUSODRIL (NAFTIDROFURYL OXALATAE) [Concomitant]
  3. ISDN ^RIKER^ (ISOSORBIDE DINIRATE) [Concomitant]

REACTIONS (4)
  - CONCUSSION [None]
  - FALL [None]
  - SKULL FRACTURE [None]
  - VERTIGO [None]
